FAERS Safety Report 11472893 (Version 1)
Quarter: 2015Q3

REPORT INFORMATION
  Report Type: Report from Study
  Country: IN (occurrence: IN)
  Receive Date: 20150908
  Receipt Date: 20150908
  Transmission Date: 20151125
  Serious: Yes (Death, Other)
  Sender: FDA-Public Use
  Company Number: IN-BAXTER-2014BAX010120

PATIENT
  Age: 58 Year
  Sex: Female

DRUGS (1)
  1. DIANEAL PD-2 WITH DEXTROSE [Suspect]
     Active Substance: CALCIUM CHLORIDE\DEXTROSE MONOHYDRATE\MAGNESIUM CHLORIDE\SODIUM CHLORIDE\SODIUM LACTATE
     Indication: PERITONEAL DIALYSIS
     Dosage: 2 BAGS (2 LITERS EACH)
     Route: 033
     Dates: start: 20130425

REACTIONS (5)
  - Cardiac failure congestive [Fatal]
  - Varicella [Recovered/Resolved]
  - Feeding disorder [Not Recovered/Not Resolved]
  - Myocardial infarction [Fatal]
  - Bedridden [Not Recovered/Not Resolved]
